FAERS Safety Report 6752985-6 (Version None)
Quarter: 2010Q2

REPORT INFORMATION
  Report Type: 
  Country: None (occurrence: None)
  Receive Date: 20100602
  Receipt Date: 20100602
  Transmission Date: 20101027
  Serious: No
  Sender: FDA-Public Use
  Company Number: None

PATIENT
  Sex: Female
  Weight: 76.2043 kg

DRUGS (1)
  1. LEXAPRO [Suspect]
     Dosage: 20MG DAILY P.O.
     Route: 048

REACTIONS (1)
  - WEIGHT INCREASED [None]
